FAERS Safety Report 8594267-6 (Version None)
Quarter: 2012Q3

REPORT INFORMATION
  Report Type: 
  Country: None (occurrence: None)
  Receive Date: 20120815
  Receipt Date: 20120807
  Transmission Date: 20120928
  Serious: No
  Sender: FDA-Public Use
  Company Number: US-009507513-1208USA004201

PATIENT

DRUGS (2)
  1. SINGULAIR [Suspect]
     Dosage: 10 MG, QD
     Route: 048
     Dates: start: 20070801
  2. SINGULAIR [Suspect]
     Indication: ASTHMA
     Dosage: 10 MG, ONCE
     Route: 048

REACTIONS (3)
  - PYREXIA [None]
  - RASH PRURITIC [None]
  - EXPIRED DRUG ADMINISTERED [None]
